FAERS Safety Report 19464330 (Version 4)
Quarter: 2021Q3

REPORT INFORMATION
  Report Type: Spontaneous
  Country: US (occurrence: US)
  Receive Date: 20210626
  Receipt Date: 20210802
  Transmission Date: 20211014
  Serious: Yes (Hospitalization)
  Sender: FDA-Public Use
  Company Number: US-NEUROCRINE BIOSCIENCES INC.-2021NBI03031

PATIENT

DRUGS (10)
  1. EFFEXOR [Concomitant]
     Active Substance: VENLAFAXINE HYDROCHLORIDE
     Indication: DEPRESSION
  2. SEROQUEL [Concomitant]
     Active Substance: QUETIAPINE FUMARATE
     Indication: DEPRESSION
  3. PRAZOSIN. [Concomitant]
     Active Substance: PRAZOSIN
     Indication: BIPOLAR DISORDER
     Dosage: 2 MILLIGRAM, QHS
     Route: 048
     Dates: start: 20210415
  4. CYANOCOBALAMIN. [Concomitant]
     Active Substance: CYANOCOBALAMIN
     Indication: VITAMIN B12
     Dosage: 1000 UNK
     Route: 030
     Dates: start: 20210415
  5. EFFEXOR [Concomitant]
     Active Substance: VENLAFAXINE HYDROCHLORIDE
     Indication: BIPOLAR DISORDER
     Dosage: 150 MILLIGRAM, BID
     Route: 048
     Dates: start: 20210415
  6. ARICEPT [Concomitant]
     Active Substance: DONEPEZIL HYDROCHLORIDE
     Indication: BIPOLAR DISORDER
     Dosage: 5 MILLIGRAM, QHS
     Route: 048
     Dates: start: 20210415
  7. ARICEPT [Concomitant]
     Active Substance: DONEPEZIL HYDROCHLORIDE
     Indication: DEPRESSION
  8. SEROQUEL [Concomitant]
     Active Substance: QUETIAPINE FUMARATE
     Indication: BIPOLAR DISORDER
     Dosage: UNK, QHS
     Route: 048
     Dates: start: 20210415
  9. PRAZOSIN. [Concomitant]
     Active Substance: PRAZOSIN
     Indication: DEPRESSION
  10. INGREZZA [Suspect]
     Active Substance: VALBENAZINE
     Indication: TARDIVE DYSKINESIA
     Dosage: 40 MILLIGRAM, QD
     Route: 048
     Dates: start: 20210203

REACTIONS (1)
  - Atrial fibrillation [Recovered/Resolved]

NARRATIVE: CASE EVENT DATE: 20210603
